FAERS Safety Report 7416307-X (Version None)
Quarter: 2011Q2

REPORT INFORMATION
  Report Type: 
  Country: None (occurrence: None)
  Receive Date: 20110414
  Receipt Date: 20110407
  Transmission Date: 20111010
  Serious: Yes (Life-Threatening)
  Sender: FDA-Public Use
  Company Number: CO-ELI_LILLY_AND_COMPANY-CO201102002453

PATIENT
  Age: 40 Year
  Sex: Male

DRUGS (4)
  1. VITAMIN B-12 [Concomitant]
  2. CISPLATIN [Concomitant]
     Indication: NON-SMALL CELL LUNG CANCER
     Dosage: 132 MG, UNKNOWN
     Route: 042
  3. FOLIC ACID [Concomitant]
  4. ALIMTA [Suspect]
     Indication: NON-SMALL CELL LUNG CANCER
     Dosage: 900 MG, UNKNOWN
     Route: 042

REACTIONS (2)
  - ANAPHYLACTIC REACTION [None]
  - ANAL SPHINCTER ATONY [None]
